FAERS Safety Report 5030811-3 (Version None)
Quarter: 2006Q2

REPORT INFORMATION
  Report Type: 
  Country: None (occurrence: None)
  Receive Date: 20060614
  Receipt Date: 20060530
  Transmission Date: 20061013
  Serious: Yes (Other)
  Sender: FDA-Public Use
  Company Number: 2006US001142

PATIENT
  Age: 25 Year
  Sex: Male

DRUGS (3)
  1. PROGRAF [Suspect]
     Indication: PROPHYLAXIS AGAINST TRANSPLANT REJECTION
     Dosage: SEE IMAGE
     Route: 048
  2. MYCOPHENOLATE MOFETIL [Suspect]
     Indication: PROPHYLAXIS AGAINST TRANSPLANT REJECTION
     Dosage: SEE IMAGE
     Route: 048
  3. PREDNISONE [Suspect]
     Indication: PROPHYLAXIS AGAINST TRANSPLANT REJECTION
     Dosage: 2.5 MG, UID/QD, ORAL
     Route: 048

REACTIONS (9)
  - ANAEMIA [None]
  - BONE MARROW FAILURE [None]
  - DIALYSIS [None]
  - HEART TRANSPLANT REJECTION [None]
  - HYPOTENSION [None]
  - OSTEONECROSIS [None]
  - POLYOMAVIRUS-ASSOCIATED NEPHROPATHY [None]
  - RENAL IMPAIRMENT [None]
  - WEIGHT DECREASED [None]
